FAERS Safety Report 6148690-X (Version None)
Quarter: 2009Q2

REPORT INFORMATION
  Report Type: 
  Country: None (occurrence: None)
  Receive Date: 20090408
  Receipt Date: 20090404
  Transmission Date: 20091009
  Serious: No
  Sender: FDA-Public Use
  Company Number: US-B.I. PHARMACEUTICALS,INC./RIDGEFIELD-2009-BP-01361BP

PATIENT
  Sex: Male

DRUGS (17)
  1. SPIRIVA [Suspect]
     Indication: CHRONIC OBSTRUCTIVE PULMONARY DISEASE
     Dosage: 18MCG
     Route: 055
     Dates: start: 20060101
  2. SPIRIVA [Suspect]
     Indication: EMPHYSEMA
  3. PREVACID [Concomitant]
     Indication: GASTROOESOPHAGEAL REFLUX DISEASE
  4. PRAVASTATIN [Concomitant]
     Indication: BLOOD CHOLESTEROL INCREASED
     Route: 048
     Dates: start: 20080101
  5. PLAVIX [Concomitant]
     Indication: CARDIAC DISORDER
     Dosage: 75MG
     Route: 048
     Dates: start: 20080101
  6. FLOMAX [Concomitant]
     Indication: BENIGN PROSTATIC HYPERPLASIA
     Dosage: .4MG
     Route: 048
     Dates: start: 20080101
  7. TEMAZEPAM [Concomitant]
     Indication: SLEEP APNOEA SYNDROME
     Dosage: 30MG
     Route: 048
     Dates: start: 20000101
  8. TEMAZEPAM [Concomitant]
     Indication: SLEEP DISORDER
  9. XALATAN [Concomitant]
     Indication: GLAUCOMA
     Dates: start: 20080101
  10. FENISTRIDE [Concomitant]
     Indication: ALOPECIA
  11. BUPROPION HCL [Concomitant]
     Indication: DEPRESSION
     Dosage: 30MG
     Route: 048
     Dates: start: 20020101
  12. HYDROCHLOROTHIAZIDE [Concomitant]
     Indication: HYPERTENSION
     Route: 048
     Dates: start: 20040101
  13. MELOXICAM [Concomitant]
     Indication: ARTHRITIS
     Dosage: 15MG
     Route: 048
     Dates: start: 20020101
  14. NEXIUM [Concomitant]
     Indication: GASTROOESOPHAGEAL REFLUX DISEASE
     Dosage: 40MG
     Route: 048
     Dates: start: 20070101
  15. SYNTHROID [Concomitant]
     Indication: THYROID DISORDER
     Dosage: .175MG
     Route: 048
     Dates: start: 19720101
  16. DOXAZOSIN MESYLATE [Concomitant]
     Indication: HYPERTENSION
     Route: 048
     Dates: start: 20070101
  17. FINESTRIDE [Concomitant]
     Indication: PROSTATOMEGALY
     Route: 048
     Dates: start: 20070101

REACTIONS (4)
  - AGEUSIA [None]
  - ANOSMIA [None]
  - DYSGEUSIA [None]
  - PAROSMIA [None]
